FAERS Safety Report 5541534-6 (Version None)
Quarter: 2007Q4

REPORT INFORMATION
  Report Type: 
  Country: None (occurrence: None)
  Receive Date: 20071210
  Receipt Date: 20071207
  Transmission Date: 20080405
  Serious: Yes (Death)
  Sender: FDA-Public Use
  Company Number: VE-BRISTOL-MYERS SQUIBB COMPANY-14002679

PATIENT
  Age: 6 Year
  Sex: Male

DRUGS (7)
  1. AMIKACIN SULFATE [Suspect]
  2. IMIPENEM [Suspect]
  3. AMPICILLIN [Concomitant]
  4. ACETAMINOPHEN [Concomitant]
  5. METRONIDAZOLE [Concomitant]
  6. VANCOMYCIN [Concomitant]
  7. CEFTRIAXONE [Concomitant]

REACTIONS (1)
  - DEATH [None]
